FAERS Safety Report 17051998 (Version 1)
Quarter: 2019Q4

REPORT INFORMATION
  Report Type: Spontaneous
  Country: GB (occurrence: GB)
  Receive Date: 20191120
  Receipt Date: 20191120
  Transmission Date: 20200122
  Serious: Yes (Other)
  Sender: FDA-Public Use
  Company Number: GB-ACCORD-160981

PATIENT
  Age: 69 Year
  Sex: Male
  Weight: 100 kg

DRUGS (18)
  1. LANSOPRAZOLE. [Concomitant]
     Active Substance: LANSOPRAZOLE
     Dosage: IN THE MORNING 30 MINUTES BEFORE FOOD
     Dates: start: 20171023
  2. BISOPROLOL [Concomitant]
     Active Substance: BISOPROLOL
     Dates: start: 20180124
  3. ISPAGHULA EXTRACT\PSYLLIUM [Concomitant]
     Active Substance: HERBALS\PLANTAGO OVATA SEED\PLANTAGO SEED
     Dosage: ONE OR TWO DAILY
     Dates: start: 20170323
  4. DOXAZOSIN [Suspect]
     Active Substance: DOXAZOSIN MESYLATE
     Indication: PRODUCT USED FOR UNKNOWN INDICATION
     Dosage: IN THE MORNING
     Dates: start: 20180518, end: 20181023
  5. CROMOGLICIC ACID [Concomitant]
     Active Substance: CROMOLYN
     Dates: start: 20171128
  6. PARACETAMOL [Concomitant]
     Active Substance: ACETAMINOPHEN
     Dates: start: 20121102, end: 20180725
  7. ATORVASTATIN [Concomitant]
     Active Substance: ATORVASTATIN
     Dates: start: 20140507
  8. COLECALCIFEROL [Concomitant]
     Active Substance: CHOLECALCIFEROL
     Dosage: DEFICIENCY IN ADULTS WEEKLY REGIME
     Dates: start: 20181010
  9. BUMETANIDE. [Concomitant]
     Active Substance: BUMETANIDE
     Dosage: IN THE MORNING
     Dates: start: 20150721
  10. FLUTICASONE. [Concomitant]
     Active Substance: FLUTICASONE
     Dates: start: 20181004
  11. LAXIDO [Concomitant]
     Active Substance: POLYETHYLENE GLYCOL 3350\POTASSIUM CHLORIDE\SODIUM BICARBONATE\SODIUM CHLORIDE
     Dosage: TAKE ONE SACHET, ONCE OR TWICE A DAY
     Dates: start: 20180717
  12. CANDESARTAN. [Concomitant]
     Active Substance: CANDESARTAN
     Dates: start: 20150320
  13. MOMETASONE [Concomitant]
     Active Substance: MOMETASONE
     Dosage: SPRAYS EACH NOSTRIL
     Dates: start: 20121213, end: 20181004
  14. DOXAZOSIN [Suspect]
     Active Substance: DOXAZOSIN MESYLATE
     Indication: ESSENTIAL HYPERTENSION
     Dosage: IN MORNING
     Dates: start: 20180412
  15. FENBID [Concomitant]
     Active Substance: IBUPROFEN
     Dosage: APPLY
     Dates: start: 20180920, end: 20181018
  16. COCODAMOL [Concomitant]
     Active Substance: ACETAMINOPHEN\CODEINE PHOSPHATE
     Dosage: 1-2 FOUR TIMES A DAY
     Dates: start: 20180717, end: 20180920
  17. DOUBLEBASE [Concomitant]
     Active Substance: ISOPROPYL MYRISTATE\PARAFFIN
     Dosage: APPLY LIBERALLY AND FREQUENTLY TO ALL AFFECTED
     Dates: start: 20150107
  18. ALENDRONATE SODIUM/ALENDRONIC ACID [Concomitant]
     Dates: start: 20170301

REACTIONS (3)
  - Headache [Unknown]
  - Back pain [Recovered/Resolved]
  - Tinnitus [Unknown]

NARRATIVE: CASE EVENT DATE: 20180412
